FAERS Safety Report 9119892 (Version 1)
Quarter: 2013Q1

REPORT INFORMATION
  Report Type: Spontaneous
  Country: FR (occurrence: FR)
  Receive Date: 20130226
  Receipt Date: 20130226
  Transmission Date: 20140127
  Serious: Yes (Hospitalization, Other)
  Sender: FDA-Public Use
  Company Number: FR-JNJFOC-20130212497

PATIENT
  Age: 38 Year
  Sex: Male

DRUGS (2)
  1. ACTIFED [Suspect]
     Indication: INFLUENZA LIKE ILLNESS
     Dosage: 3 TABLETS A DAY ON 14-DEC-2012
     Route: 048
     Dates: start: 20121214, end: 20121216
  2. ACTIFED [Suspect]
     Indication: INFLUENZA LIKE ILLNESS
     Dosage: 1 TABLET NIGHT ON 14-DEC-2012
     Route: 048
     Dates: start: 20121214, end: 20121216

REACTIONS (4)
  - Chest pain [Recovered/Resolved]
  - Inflammation [Recovered/Resolved]
  - Cough [Recovered/Resolved]
  - Dyspnoea [Recovered/Resolved]
